FAERS Safety Report 21675335 (Version 1)
Quarter: 2022Q4

REPORT INFORMATION
  Report Type: Spontaneous
  Country: US (occurrence: None)
  Receive Date: 20221202
  Receipt Date: 20221202
  Transmission Date: 20230113
  Serious: Yes (Hospitalization)
  Sender: FDA-Public Use
  Company Number: None

PATIENT
  Age: 76 Year
  Sex: Female
  Weight: 55.4 kg

DRUGS (15)
  1. CAPECITABINE [Suspect]
     Active Substance: CAPECITABINE
     Indication: Anal cancer
     Dosage: FREQUENCY : TWICE A DAY;?
     Route: 048
  2. LEVOTHYROXINE [Concomitant]
  3. aspirin [Concomitant]
  4. CAPECITABINE [Concomitant]
  5. BIOTIN [Concomitant]
  6. Citracal plus vitamin D. Max [Concomitant]
  7. FLUTICASONE [Concomitant]
     Active Substance: FLUTICASONE
  8. HYDROXYZINE HCL [Concomitant]
  9. mag-Oxide [Concomitant]
  10. ONDANSETRON [Concomitant]
  11. PROLIA [Concomitant]
  12. Theragran-M [Concomitant]
  13. Vitamin C [Concomitant]
  14. Vitamin D 2,000 IU [Concomitant]
  15. ACETAMINOPHEN [Concomitant]

REACTIONS (2)
  - Diarrhoea [None]
  - Adverse reaction [None]

NARRATIVE: CASE EVENT DATE: 20221128
